FAERS Safety Report 23389739 (Version 4)
Quarter: 2024Q2

REPORT INFORMATION
  Report Type: Spontaneous
  Country: IT (occurrence: None)
  Receive Date: 20240111
  Receipt Date: 20240606
  Transmission Date: 20240717
  Serious: Yes (Hospitalization)
  Sender: FDA-Public Use
  Company Number: None

PATIENT
  Age: 52 Year
  Sex: Female

DRUGS (1)
  1. OCREVUS [Suspect]
     Active Substance: OCRELIZUMAB
     Indication: Relapsing-remitting multiple sclerosis
     Dosage: START WITH OCRELIZUMAB 300 MG 1 FL IV, AFTER 14 DAYS SECOND CYCLE OCRELIZUMAB 300 MG 1 FL IV, THEN O
     Route: 042
     Dates: start: 20231109, end: 20231123

REACTIONS (1)
  - Pneumonia [Recovering/Resolving]

NARRATIVE: CASE EVENT DATE: 20231216
